FAERS Safety Report 5188206-8 (Version None)
Quarter: 2006Q4

REPORT INFORMATION
  Report Type: 
  Country: None (occurrence: None)
  Receive Date: 20061221
  Receipt Date: 20061215
  Transmission Date: 20070319
  Serious: Yes (Life-Threatening)
  Sender: FDA-Public Use
  Company Number: DE-AMGEN-UK203853

PATIENT
  Sex: Male

DRUGS (2)
  1. PALIFERMIN [Suspect]
     Indication: MUCOSAL INFLAMMATION
     Route: 042
     Dates: start: 20061117, end: 20061208
  2. CISPLATIN [Suspect]

REACTIONS (6)
  - BLOOD TEST ABNORMAL [None]
  - DEVICE RELATED INFECTION [None]
  - GENERAL PHYSICAL HEALTH DETERIORATION [None]
  - HEPATIC CIRRHOSIS [None]
  - PERFORMANCE STATUS DECREASED [None]
  - PNEUMONIA [None]
